FAERS Safety Report 13994291 (Version 1)
Quarter: 2017Q3

REPORT INFORMATION
  Report Type: Spontaneous
  Country: US (occurrence: US)
  Receive Date: 20170920
  Receipt Date: 20170920
  Transmission Date: 20171128
  Serious: No
  Sender: FDA-Public Use
  Company Number: US-ELI_LILLY_AND_COMPANY-US201709007086

PATIENT
  Age: 15 Year
  Sex: Female

DRUGS (2)
  1. TRULICITY [Suspect]
     Active Substance: DULAGLUTIDE
     Indication: GLUCOSE TOLERANCE IMPAIRED
     Dosage: 0.75 MG, UNKNOWN
     Route: 058
     Dates: start: 20170916
  2. TRULICITY [Suspect]
     Active Substance: DULAGLUTIDE
     Indication: WEIGHT DECREASED

REACTIONS (11)
  - Rash [Unknown]
  - Off label use [Unknown]
  - Decreased appetite [Unknown]
  - Lethargy [Unknown]
  - Pain in extremity [Unknown]
  - Hypokinesia [Unknown]
  - Myalgia [Unknown]
  - Hypersomnia [Unknown]
  - Vomiting [Unknown]
  - Headache [Unknown]
  - Thinking abnormal [Unknown]

NARRATIVE: CASE EVENT DATE: 20170916
